FAERS Safety Report 8911221 (Version 3)
Quarter: 2013Q2

REPORT INFORMATION
  Report Type: Spontaneous
  Country: US (occurrence: US)
  Receive Date: 20121116
  Receipt Date: 20130401
  Transmission Date: 20140414
  Serious: Yes (Death, Hospitalization)
  Sender: FDA-Public Use
  Company Number: US-GLAXOSMITHKLINE-A0992215A

PATIENT
  Age: 77 Year
  Sex: Female

DRUGS (8)
  1. TYKERB [Suspect]
     Indication: BREAST CANCER METASTATIC
     Dosage: 1250MG PER DAY
     Route: 048
     Dates: start: 201207, end: 201211
  2. ASPIRIN [Concomitant]
  3. CRESTOR [Concomitant]
  4. FOLIC ACID [Concomitant]
  5. IRON [Concomitant]
  6. MULTIVITAMIN [Concomitant]
  7. VASOTEC [Concomitant]
  8. PROTONIX [Concomitant]

REACTIONS (8)
  - Death [Fatal]
  - Renal failure acute [Unknown]
  - Dehydration [Unknown]
  - Nausea [Unknown]
  - Fatigue [Unknown]
  - Diarrhoea [Unknown]
  - Vomiting [Unknown]
  - Renal disorder [Unknown]
